FAERS Safety Report 7740865-9 (Version None)
Quarter: 2011Q3

REPORT INFORMATION
  Report Type: 
  Country: None (occurrence: None)
  Receive Date: 20110909
  Receipt Date: 20110831
  Transmission Date: 20111222
  Serious: Yes (Hospitalization)
  Sender: FDA-Public Use
  Company Number: US-JNJFOC-20110901982

PATIENT
  Sex: Female
  Weight: 53 kg

DRUGS (13)
  1. FERROUS SULFATE TAB [Concomitant]
  2. PREDNISONE [Concomitant]
  3. CALCIUM WITH VITAMIN D [Concomitant]
  4. OMEPRAZOLE [Concomitant]
  5. ANTIBIOTICS [Concomitant]
  6. FOLIC ACID [Concomitant]
  7. ERGOCALCIFEROL [Concomitant]
  8. ACETAMINOPHEN [Concomitant]
  9. MULTI-VITAMINS [Concomitant]
  10. ALBUTEROL SULFATE AUTOHALER [Concomitant]
  11. ADVAIR DISKUS 100/50 [Concomitant]
  12. OXYCODONE HCL [Concomitant]
  13. REMICADE [Suspect]
     Indication: INFLAMMATORY BOWEL DISEASE
     Route: 042
     Dates: start: 20110107, end: 20110215

REACTIONS (1)
  - POST PROCEDURAL INFECTION [None]
